FAERS Safety Report 14692651 (Version 5)
Quarter: 2023Q4

REPORT INFORMATION
  Report Type: Report from Study
  Country: US (occurrence: US)
  Receive Date: 20180329
  Receipt Date: 20231107
  Transmission Date: 20240110
  Serious: No
  Sender: FDA-Public Use
  Company Number: US-AMGEN-USASP2018041514

PATIENT
  Age: 57 Year
  Sex: Female

DRUGS (4)
  1. ENBREL [Suspect]
     Active Substance: ETANERCEPT
     Indication: Rheumatoid arthritis
     Dosage: 50 MILLIGRAM, QWK
     Route: 058
     Dates: start: 20180303, end: 20180319
  2. HUMIRA [Suspect]
     Active Substance: ADALIMUMAB
     Indication: Felty^s syndrome
     Dosage: UNK
     Route: 058
     Dates: start: 201708, end: 20180308
  3. RASUVO [Concomitant]
     Active Substance: METHOTREXATE SODIUM
     Indication: Felty^s syndrome
     Dosage: 20 MG, QWK (20 MG/0.4 ML)
     Route: 058
     Dates: start: 201706, end: 201803
  4. XELJANZ XR [Concomitant]
     Active Substance: TOFACITINIB CITRATE
     Dosage: 11 MG, QD
     Route: 048

REACTIONS (3)
  - Drug ineffective [Unknown]
  - Rash [Unknown]
  - Off label use [Unknown]

NARRATIVE: CASE EVENT DATE: 20180301
